FAERS Safety Report 7356101-1 (Version None)
Quarter: 2011Q1

REPORT INFORMATION
  Report Type: 
  Country: None (occurrence: None)
  Receive Date: 20110316
  Receipt Date: 20110301
  Transmission Date: 20110831
  Serious: Yes (Hospitalization)
  Sender: FDA-Public Use
  Company Number: US-BAYER-201019760NA

PATIENT
  Sex: Female
  Weight: 118.18 kg

DRUGS (13)
  1. AMBIEN [Concomitant]
  2. YASMIN [Suspect]
     Indication: PRODUCT USED FOR UNKNOWN INDICATION
     Route: 048
  3. ADVIL LIQUI-GELS [Concomitant]
     Indication: HEADACHE
  4. AMITRIPTYLINE [Concomitant]
     Indication: HEADACHE
     Dates: start: 19960101
  5. ZOMIG [Concomitant]
     Route: 045
  6. DILTIAZEM [Concomitant]
  7. FISH OIL [Concomitant]
  8. UNCODEABLE ^UNCLASSIFIABLE^ [Concomitant]
     Indication: PYREXIA
     Dates: start: 20080201
  9. YAZ [Suspect]
     Indication: HOT FLUSH
     Route: 048
     Dates: start: 20070101, end: 20080101
  10. PRILOSEC [Concomitant]
  11. ADVIL LIQUI-GELS [Concomitant]
     Indication: PYREXIA
     Dates: start: 20080215
  12. UNCODEABLE ^UNCLASSIFIABLE^ [Concomitant]
     Indication: HEADACHE
  13. ELAVIL [Concomitant]

REACTIONS (8)
  - RASH [None]
  - PAIN [None]
  - ASTHENIA [None]
  - OEDEMA PERIPHERAL [None]
  - PAIN IN EXTREMITY [None]
  - DEEP VEIN THROMBOSIS [None]
  - LOCALISED OEDEMA [None]
  - EMBOLISM VENOUS [None]
